FAERS Safety Report 21134934 (Version 1)
Quarter: 2022Q3

REPORT INFORMATION
  Report Type: Report from Study
  Country: US (occurrence: US)
  Receive Date: 20220727
  Receipt Date: 20220727
  Transmission Date: 20221027
  Serious: Yes (Other)
  Sender: FDA-Public Use
  Company Number: US-ABBVIE-22K-163-4477210-00

PATIENT
  Sex: Male
  Weight: 85.352 kg

DRUGS (15)
  1. HUMIRA [Suspect]
     Active Substance: ADALIMUMAB
     Indication: Crohn^s disease
     Dosage: CITRATE FREE
     Route: 058
  2. MODERNA COVID-19 VACCINE [Concomitant]
     Active Substance: ELASOMERAN
     Indication: COVID-19 immunisation
     Dosage: FIRST DOSE
     Route: 030
     Dates: start: 20210218, end: 20210218
  3. MODERNA COVID-19 VACCINE [Concomitant]
     Active Substance: ELASOMERAN
     Dosage: SECOND DOSE
     Route: 030
     Dates: start: 20210318, end: 20210318
  4. MODERNA COVID-19 VACCINE [Concomitant]
     Active Substance: ELASOMERAN
     Dosage: THIRD DOSE
     Route: 030
     Dates: start: 20211120, end: 20211120
  5. MODERNA COVID-19 VACCINE [Concomitant]
     Active Substance: ELASOMERAN
     Dosage: FOURTH DOSE
     Route: 030
     Dates: start: 20220527, end: 20220527
  6. CARVEDILOL [Concomitant]
     Active Substance: CARVEDILOL
     Indication: Hypertension
  7. IRBESARTAN [Concomitant]
     Active Substance: IRBESARTAN
     Indication: Hypertension
  8. AMLODIPINE [Concomitant]
     Active Substance: AMLODIPINE BESYLATE
     Indication: Hypertension
  9. ALLOPURINOL [Concomitant]
     Active Substance: ALLOPURINOL
     Indication: Gout
  10. FOLIC ACID [Concomitant]
     Active Substance: FOLIC ACID
     Indication: Vitamin supplementation
  11. MESALAMINE [Concomitant]
     Active Substance: MESALAMINE
     Indication: Gastrointestinal disorder
  12. ALFUZOSIN [Concomitant]
     Active Substance: ALFUZOSIN
     Indication: Prostatomegaly
  13. FINASTERIDE [Concomitant]
     Active Substance: FINASTERIDE
     Indication: Prostatomegaly
  14. ROSUVASTATIN [Concomitant]
     Active Substance: ROSUVASTATIN
     Indication: Blood cholesterol increased
  15. VITAMIN B12 [Concomitant]
     Active Substance: CYANOCOBALAMIN
     Indication: Vitamin supplementation

REACTIONS (3)
  - Macular degeneration [Not Recovered/Not Resolved]
  - Therapeutic response unexpected [Unknown]
  - Injection site pain [Unknown]

NARRATIVE: CASE EVENT DATE: 20200101
